FAERS Safety Report 7914778 (Version 2)
Quarter: 2013Q2

REPORT INFORMATION
  Report Type: Report from Study
  Country: MX (occurrence: MX)
  Receive Date: 20110426
  Receipt Date: 20130603
  Transmission Date: 20140414
  Serious: Yes (Hospitalization)
  Sender: FDA-Public Use
  Company Number: PHHY2011MX31400

PATIENT
  Age: 51 Year
  Sex: Female

DRUGS (1)
  1. CO-DIOVAN [Suspect]
     Indication: HYPERTENSION
     Dosage: 1 DF (160MG VALS /12.5 MG) PER DAY
     Route: 048
     Dates: start: 201101

REACTIONS (2)
  - Tracheal mass [Not Recovered/Not Resolved]
  - Thyroid disorder [Not Recovered/Not Resolved]
